FAERS Safety Report 7397362-2 (Version None)
Quarter: 2011Q2

REPORT INFORMATION
  Report Type: 
  Country: None (occurrence: None)
  Receive Date: 20110406
  Receipt Date: 20110404
  Transmission Date: 20111010
  Serious: Yes (Other)
  Sender: FDA-Public Use
  Company Number: US-PFIZER INC-2011074473

PATIENT
  Sex: Female
  Weight: 63.492 kg

DRUGS (2)
  1. ACETYLSALICYLIC ACID [Concomitant]
     Dosage: UNK
  2. PROTONIX [Suspect]
     Indication: GASTROINTESTINAL HAEMORRHAGE
     Dosage: 40 MG, DAILY
     Route: 048
     Dates: start: 20060101

REACTIONS (3)
  - BONE DENSITY ABNORMAL [None]
  - CARDIAC DISORDER [None]
  - HYPERTENSION [None]
